FAERS Safety Report 11995350 (Version 1)
Quarter: 2016Q1

REPORT INFORMATION
  Report Type: Spontaneous
  Country: CN (occurrence: CN)
  Receive Date: 20160203
  Receipt Date: 20160203
  Transmission Date: 20160526
  Serious: Yes (Other)
  Sender: FDA-Public Use
  Company Number: CN-ELI_LILLY_AND_COMPANY-CN201601008547

PATIENT
  Sex: Male
  Weight: 60 kg

DRUGS (4)
  1. HUMULIN 70/30 [Suspect]
     Active Substance: INSULIN HUMAN
     Indication: DIABETES MELLITUS
     Dosage: 10 DF, EACH MORNING
     Route: 058
     Dates: start: 20051210
  2. HUMULIN 70/30 [Suspect]
     Active Substance: INSULIN HUMAN
     Dosage: 10 DF, QD
     Route: 058
     Dates: start: 20051210
  3. HUMULIN 70/30 [Suspect]
     Active Substance: INSULIN HUMAN
     Dosage: 10 DF, EACH EVENING
     Route: 058
     Dates: start: 20051210
  4. METFORMIN [Concomitant]
     Active Substance: METFORMIN HYDROCHLORIDE

REACTIONS (3)
  - Gait disturbance [Unknown]
  - Cerebral thrombosis [Unknown]
  - Paralysis [Unknown]

NARRATIVE: CASE EVENT DATE: 20151010
